FAERS Safety Report 8376608-8 (Version None)
Quarter: 2012Q2

REPORT INFORMATION
  Report Type: 
  Country: None (occurrence: None)
  Receive Date: 20120522
  Receipt Date: 20120517
  Transmission Date: 20120825
  Serious: Yes (Other)
  Sender: FDA-Public Use
  Company Number: VE-PFIZER INC-2012115350

PATIENT
  Age: 71 Year
  Sex: Male

DRUGS (2)
  1. LIPITOR [Suspect]
     Indication: HYPERCHOLESTEROLAEMIA
     Dosage: 40 MG, 1X/DAY
     Route: 048
  2. IRBESARTAN [Concomitant]
     Indication: HYPERTENSION
     Dosage: 300/25 MG, 1X/DAY
     Route: 048

REACTIONS (1)
  - UMBILICAL HERNIA REPAIR [None]
